FAERS Safety Report 21745809 (Version 1)
Quarter: 2022Q4

REPORT INFORMATION
  Report Type: Report from Study
  Country: US (occurrence: US)
  Receive Date: 20221219
  Receipt Date: 20221219
  Transmission Date: 20230113
  Serious: Yes (Other)
  Sender: FDA-Public Use
  Company Number: US-ABBVIE-4241056

PATIENT
  Sex: Male

DRUGS (1)
  1. HUMIRA [Suspect]
     Active Substance: ADALIMUMAB
     Indication: Rheumatoid arthritis
     Route: 058

REACTIONS (7)
  - Blindness unilateral [Unknown]
  - Eye pain [Unknown]
  - Pain [Unknown]
  - Rheumatoid arthritis [Unknown]
  - Eye swelling [Unknown]
  - Swelling [Unknown]
  - Therapeutic response shortened [Unknown]
